FAERS Safety Report 17578117 (Version 1)
Quarter: 2020Q1

REPORT INFORMATION
  Report Type: Spontaneous
  Country: US (occurrence: US)
  Receive Date: 20200324
  Receipt Date: 20200324
  Transmission Date: 20200409
  Serious: No
  Sender: FDA-Public Use
  Company Number: US-INCYTE CORPORATION-2020IN002587

PATIENT

DRUGS (1)
  1. JAKAFI [Suspect]
     Active Substance: RUXOLITINIB
     Indication: HYPOGAMMAGLOBULINAEMIA
     Dosage: 10 MILLIGRAM, BID
     Route: 048
     Dates: start: 20190502

REACTIONS (2)
  - Stomatitis [Not Recovered/Not Resolved]
  - Off label use [Unknown]
